FAERS Safety Report 6585422-5 (Version None)
Quarter: 2010Q1

REPORT INFORMATION
  Report Type: 
  Country: None (occurrence: None)
  Receive Date: 20100217
  Receipt Date: 20100204
  Transmission Date: 20100710
  Serious: Yes (Hospitalization)
  Sender: FDA-Public Use
  Company Number: B0435757A

PATIENT
  Sex: Female
  Weight: 10.3 kg

DRUGS (2)
  1. PRIORIX [Suspect]
     Route: 058
     Dates: start: 20060606, end: 20060606
  2. ZINACEF [Suspect]
     Dosage: .5G TWICE PER DAY
     Route: 030
     Dates: start: 20060723, end: 20060725

REACTIONS (4)
  - DRUG ERUPTION [None]
  - PHARYNGITIS [None]
  - PYREXIA [None]
  - RASH PRURITIC [None]
